FAERS Safety Report 16718648 (Version 1)
Quarter: 2019Q3

REPORT INFORMATION
  Report Type: Spontaneous
  Country: GB (occurrence: GB)
  Receive Date: 20190820
  Receipt Date: 20190820
  Transmission Date: 20191005
  Serious: Yes (Hospitalization)
  Sender: FDA-Public Use
  Company Number: GB-ACCORD-151951

PATIENT
  Age: 63 Year
  Sex: Male

DRUGS (3)
  1. HYDROCORTISONE. [Concomitant]
     Active Substance: HYDROCORTISONE
  2. METHOTREXATE. [Suspect]
     Active Substance: METHOTREXATE
     Indication: PRODUCT USED FOR UNKNOWN INDICATION
     Route: 048
     Dates: start: 20190116
  3. FOLIC ACID. [Concomitant]
     Active Substance: FOLIC ACID
     Route: 048

REACTIONS (3)
  - Nephrolithiasis [Not Recovered/Not Resolved]
  - Flank pain [Recovering/Resolving]
  - Groin pain [Recovering/Resolving]

NARRATIVE: CASE EVENT DATE: 20190531
